FAERS Safety Report 7956593-0 (Version None)
Quarter: 2011Q4

REPORT INFORMATION
  Report Type: 
  Country: None (occurrence: None)
  Receive Date: 20111205
  Receipt Date: 20111128
  Transmission Date: 20120403
  Serious: Yes (Death)
  Sender: FDA-Public Use
  Company Number: PHHY2011TW104725

PATIENT
  Age: 40 Year
  Sex: Female

DRUGS (1)
  1. CARBAMAZEPINE [Suspect]
     Indication: CARPAL TUNNEL SYNDROME

REACTIONS (5)
  - SEPTIC SHOCK [None]
  - DISSEMINATED INTRAVASCULAR COAGULATION [None]
  - TOXIC EPIDERMAL NECROLYSIS [None]
  - MULTI-ORGAN FAILURE [None]
  - SKIN EXFOLIATION [None]
